FAERS Safety Report 4413856-3 (Version None)
Quarter: 2004Q3

REPORT INFORMATION
  Report Type: 
  Country: None (occurrence: None)
  Receive Date: 20040728
  Receipt Date: 20040719
  Transmission Date: 20050211
  Serious: Yes (Hospitalization)
  Sender: FDA-Public Use
  Company Number: STA-AE-04-MTX-292

PATIENT
  Age: 77 Year
  Sex: Female

DRUGS (5)
  1. METHOTREXATE [Suspect]
     Indication: RHEUMATOID ARTHRITIS
     Dosage: 10 MG, 1 X PER 1 WK
     Dates: end: 20040528
  2. FELODIPINE [Concomitant]
  3. PREDNISOLONE [Concomitant]
  4. ALENDRONATE SODIUM [Concomitant]
  5. LANSOPRAZOLE [Concomitant]

REACTIONS (3)
  - BRONCHITIS ACUTE [None]
  - SPUTUM ABNORMAL [None]
  - STAPHYLOCOCCAL INFECTION [None]
